FAERS Safety Report 8914789 (Version 2)
Quarter: 2012Q4

REPORT INFORMATION
  Report Type: 
  Country: US (occurrence: US)
  Receive Date: 20121119
  Receipt Date: 20121231
  Transmission Date: 20130627
  Serious: Yes (Hospitalization)
  Sender: FDA-Public Use
  Company Number: US-JNJFOC-20121106219

PATIENT
  Age: 84 Year
  Sex: Female
  Weight: 54.2 kg

DRUGS (10)
  1. RIVAROXABAN [Suspect]
     Indication: CEREBROVASCULAR ACCIDENT PROPHYLAXIS
     Dosage: restarted 4 days prior to admission
     Route: 048
  2. RIVAROXABAN [Suspect]
     Indication: CEREBROVASCULAR ACCIDENT PROPHYLAXIS
     Dosage: JAN-FEB-2012
     Route: 048
  3. RIVAROXABAN [Suspect]
     Indication: CEREBROVASCULAR ACCIDENT PROPHYLAXIS
     Dosage: off drug for 3 days prior to colonoscopy
     Route: 048
     Dates: end: 20120613
  4. RIVAROXABAN [Suspect]
     Indication: ATRIAL FIBRILLATION
     Dosage: restarted 4 days prior to admission
     Route: 048
  5. RIVAROXABAN [Suspect]
     Indication: ATRIAL FIBRILLATION
     Dosage: off drug for 3 days prior to colonoscopy
     Route: 048
     Dates: end: 20120613
  6. RIVAROXABAN [Suspect]
     Indication: ATRIAL FIBRILLATION
     Dosage: JAN-FEB-2012
     Route: 048
  7. FLUTICASONE [Concomitant]
     Dosage: 2 puffs
     Route: 065
  8. PRAVASTATIN [Concomitant]
     Route: 065
  9. CHOLECALCIFEROL [Concomitant]
     Dosage: 1000 units
     Route: 065
  10. HYDROCHLOROTHIAZIDE AND OLMESARTAN [Concomitant]
     Route: 065

REACTIONS (3)
  - Diverticulum [Unknown]
  - Gastrointestinal haemorrhage [Recovered/Resolved]
  - Occult blood positive [Unknown]
